FAERS Safety Report 25139297 (Version 3)
Quarter: 2025Q2

REPORT INFORMATION
  Report Type: Report from Study
  Country: JP (occurrence: JP)
  Receive Date: 20250331
  Receipt Date: 20250408
  Transmission Date: 20250716
  Serious: Yes (Hospitalization, Other)
  Sender: TAKEDA
  Company Number: JP-TAKEDA-2025TJP003282

PATIENT
  Age: 77 Year
  Sex: Female
  Weight: 41 kg

DRUGS (4)
  1. IXAZOMIB [Suspect]
     Active Substance: IXAZOMIB
     Indication: Plasma cell myeloma
     Dosage: 2.3 MILLIGRAM, 1/WEEK
     Dates: start: 20221214, end: 20230921
  2. IXAZOMIB [Suspect]
     Active Substance: IXAZOMIB
  3. ACYCLOVIR [Concomitant]
     Active Substance: ACYCLOVIR
     Indication: Infection prophylaxis
  4. SULFAMETHOXAZOLE\TRIMETHOPRIM [Concomitant]
     Active Substance: SULFAMETHOXAZOLE\TRIMETHOPRIM
     Indication: Infection prophylaxis

REACTIONS (7)
  - Pneumonia legionella [Not Recovered/Not Resolved]
  - Metapneumovirus pneumonia [Not Recovered/Not Resolved]
  - Liver disorder [Unknown]
  - Hyponatraemia [Unknown]
  - Decreased immune responsiveness [Unknown]
  - Nausea [Unknown]
  - Rash [Unknown]

NARRATIVE: CASE EVENT DATE: 20250313
